FAERS Safety Report 8342341-1 (Version None)
Quarter: 2012Q2

REPORT INFORMATION
  Report Type: 
  Country: None (occurrence: None)
  Receive Date: 20120508
  Receipt Date: 20120503
  Transmission Date: 20120825
  Serious: Yes (Other)
  Sender: FDA-Public Use
  Company Number: US-AMGEN-USASP2011032634

PATIENT
  Age: 54 Year
  Sex: Female
  Weight: 57.143 kg

DRUGS (3)
  1. PREDNISONE [Concomitant]
     Indication: PLATELET COUNT DECREASED
     Dosage: 50 MG, QD
     Route: 048
  2. IMURAN [Concomitant]
     Indication: PLATELET COUNT DECREASED
     Dosage: 50 MG, UNK
  3. NPLATE [Suspect]
     Indication: IDIOPATHIC THROMBOCYTOPENIC PURPURA
     Dosage: 50 MUG, UNK
     Route: 058
     Dates: start: 20100909, end: 20110318

REACTIONS (2)
  - DRUG INEFFECTIVE [None]
  - THROMBOCYTOPENIA [None]
